FAERS Safety Report 13007634 (Version 3)
Quarter: 2017Q1

REPORT INFORMATION
  Report Type: Spontaneous
  Country: US (occurrence: US)
  Receive Date: 20161207
  Receipt Date: 20170216
  Transmission Date: 20170428
  Serious: No
  Sender: FDA-Public Use
  Company Number: US-GLAXOSMITHKLINE-US2016181124

PATIENT
  Sex: Female

DRUGS (11)
  1. LORATADINE. [Concomitant]
     Active Substance: LORATADINE
  2. VITAMIN D3 [Concomitant]
     Active Substance: CHOLECALCIFEROL
  3. LOSARTAN. [Concomitant]
     Active Substance: LOSARTAN
  4. DEXILANT [Concomitant]
     Active Substance: DEXLANSOPRAZOLE
  5. LEVOXYL [Concomitant]
     Active Substance: LEVOTHYROXINE SODIUM
  6. SINGULAIR [Concomitant]
     Active Substance: MONTELUKAST SODIUM
  7. MAGNESIUM [Concomitant]
     Active Substance: MAGNESIUM
  8. FENOFIBRATE. [Concomitant]
     Active Substance: FENOFIBRATE
  9. BREO ELLIPTA [Suspect]
     Active Substance: FLUTICASONE FUROATE\VILANTEROL TRIFENATATE
     Indication: ASTHMA
     Dosage: 1 PUFF(S), 1D
     Route: 055
     Dates: start: 201609
  10. PATANOL EYE DROPS [Concomitant]
  11. VAGIFEM [Concomitant]
     Active Substance: ESTRADIOL

REACTIONS (4)
  - Dyspnoea [Recovering/Resolving]
  - Sleep disorder [Unknown]
  - Product quality issue [Unknown]
  - Drug ineffective [Recovering/Resolving]
